FAERS Safety Report 10748438 (Version 1)
Quarter: 2015Q1

REPORT INFORMATION
  Report Type: Spontaneous
  Country: US (occurrence: None)
  Receive Date: 20150128
  Receipt Date: 20150128
  Transmission Date: 20150721
  Serious: No
  Sender: FDA-Public Use
  Company Number: None

PATIENT
  Age: 50 Year
  Sex: Female

DRUGS (1)
  1. ENBREL [Suspect]
     Active Substance: ETANERCEPT
     Dosage: STRENGTH: 50
     Dates: start: 20140101

REACTIONS (3)
  - Injection site reaction [None]
  - Feeling hot [None]
  - Palpitations [None]

NARRATIVE: CASE EVENT DATE: 20150123
